FAERS Safety Report 9199871 (Version 1)
Quarter: 2013Q1

REPORT INFORMATION
  Report Type: Report from Study
  Country: DE (occurrence: DE)
  Receive Date: 20130329
  Receipt Date: 20130329
  Transmission Date: 20140127
  Serious: Yes (Hospitalization, Disabling)
  Sender: FDA-Public Use
  Company Number: DE-PFIZER INC-2013101460

PATIENT
  Age: 51 Year
  Sex: Male
  Weight: 85 kg

DRUGS (3)
  1. BLINDED THERAPY [Suspect]
     Indication: NON-SMALL CELL LUNG CANCER
     Dosage: UNK
     Route: 030
     Dates: start: 20111025, end: 20111025
  2. CARBOPLATIN [Suspect]
     Indication: ADENOCARCINOMA
     Dosage: UNK
     Route: 042
     Dates: start: 20090505, end: 20090814
  3. PACLITAXEL [Suspect]
     Indication: ADENOCARCINOMA
     Dosage: UNK
     Route: 042
     Dates: start: 20090505, end: 20090814

REACTIONS (6)
  - Second primary malignancy [Not Recovered/Not Resolved]
  - Leukaemia [Not Recovered/Not Resolved]
  - Pneumonia [None]
  - Sepsis [None]
  - Acute myeloid leukaemia [None]
  - Respiratory failure [None]
